FAERS Safety Report 8513444-3 (Version None)
Quarter: 2012Q3

REPORT INFORMATION
  Report Type: 
  Country: None (occurrence: None)
  Receive Date: 20120717
  Receipt Date: 20120709
  Transmission Date: 20120928
  Serious: No
  Sender: FDA-Public Use
  Company Number: US-BIOGENIDEC-2012BI023027

PATIENT
  Sex: Female

DRUGS (4)
  1. OXYCODONE HCL [Concomitant]
     Indication: NECK PAIN
  2. OXYCODONE HCL [Concomitant]
     Indication: MUSCULOSKELETAL PAIN
  3. TYSABRI [Suspect]
     Indication: MULTIPLE SCLEROSIS
     Route: 042
  4. TYSABRI [Suspect]
     Route: 042
     Dates: start: 20120110

REACTIONS (14)
  - URINARY INCONTINENCE [None]
  - MUSCULOSKELETAL STIFFNESS [None]
  - APHASIA [None]
  - STRESS [None]
  - ANGER [None]
  - PAIN [None]
  - FATIGUE [None]
  - CONFUSIONAL STATE [None]
  - FRUSTRATION [None]
  - GAIT DISTURBANCE [None]
  - ANXIETY [None]
  - MEMORY IMPAIRMENT [None]
  - EMOTIONAL DISTRESS [None]
  - CENTRAL NERVOUS SYSTEM LESION [None]
